FAERS Safety Report 24619056 (Version 1)
Quarter: 2024Q4

REPORT INFORMATION
  Report Type: Spontaneous
  Country: US (occurrence: US)
  Receive Date: 20241114
  Receipt Date: 20241114
  Transmission Date: 20250114
  Serious: No
  Sender: CIPLA
  Company Number: US-CIPLA LTD.-2024US10386

PATIENT

DRUGS (1)
  1. GABAPENTIN [Suspect]
     Active Substance: GABAPENTIN
     Indication: Product used for unknown indication
     Dosage: UNK
     Route: 048
     Dates: start: 2022

REACTIONS (6)
  - Lip swelling [Not Recovered/Not Resolved]
  - Illness [Unknown]
  - Fatigue [Unknown]
  - Dizziness [Not Recovered/Not Resolved]
  - Vision blurred [Not Recovered/Not Resolved]
  - Dysarthria [Unknown]

NARRATIVE: CASE EVENT DATE: 20240101
